FAERS Safety Report 24272644 (Version 1)
Quarter: 2024Q3

REPORT INFORMATION
  Report Type: Spontaneous
  Country: FI (occurrence: FI)
  Receive Date: 20240902
  Receipt Date: 20240902
  Transmission Date: 20241017
  Serious: Yes (Other)
  Sender: AMGEN
  Company Number: None

PATIENT

DRUGS (2)
  1. REPATHA [Suspect]
     Active Substance: EVOLOCUMAB
     Indication: Product used for unknown indication
     Dosage: I WENT TO LABS AND AFTER THAT I CHANGED THE INJECTIONS TO BE INJECTED EVERY 3 WEEKS FOR HALF A YEAR,
     Route: 065
  2. REPATHA [Suspect]
     Active Substance: EVOLOCUMAB
     Dosage: I WENT TO LABS AND AFTER THAT I CHANGED THE INJECTIONS TO BE INJECTED EVERY 3 WEEKS FOR HALF A YEAR,
     Route: 065

REACTIONS (3)
  - Renal failure [Unknown]
  - Intentional product misuse [Unknown]
  - High density lipoprotein decreased [Unknown]
